FAERS Safety Report 4416800-8 (Version None)
Quarter: 2004Q3

REPORT INFORMATION
  Report Type: 
  Country: None (occurrence: None)
  Receive Date: 20040802
  Receipt Date: 20040720
  Transmission Date: 20050211
  Serious: Yes (Death)
  Sender: FDA-Public Use
  Company Number: US-JNJFOC-20040706545

PATIENT
  Age: 12 Year
  Sex: Male

DRUGS (1)
  1. TYLENOL [Suspect]

REACTIONS (5)
  - COMA [None]
  - DRUG LEVEL INCREASED [None]
  - HEADACHE [None]
  - NEPHROLITHIASIS [None]
  - VOMITING [None]
